APPROVED DRUG PRODUCT: PROMETHAZINE HYDROCHLORIDE
Active Ingredient: PROMETHAZINE HYDROCHLORIDE
Strength: 50MG/ML
Dosage Form/Route: INJECTABLE;INJECTION
Application: A040372 | Product #002
Applicant: HOSPIRA INC
Approved: Jun 8, 2000 | RLD: No | RS: No | Type: DISCN